FAERS Safety Report 22772150 (Version 3)
Quarter: 2023Q4

REPORT INFORMATION
  Report Type: Report from Study
  Country: US (occurrence: US)
  Receive Date: 20230801
  Receipt Date: 20231205
  Transmission Date: 20240109
  Serious: No
  Sender: FDA-Public Use
  Company Number: US-002147023-NVSC2023US167223

PATIENT
  Age: 5 Year
  Sex: Female

DRUGS (3)
  1. ILARIS [Suspect]
     Active Substance: CANAKINUMAB
     Indication: Juvenile idiopathic arthritis
     Dosage: 80 MG, Q4W
     Route: 058
     Dates: start: 202209
  2. ILARIS [Suspect]
     Active Substance: CANAKINUMAB
     Dosage: 81 MG, QMO
     Route: 058
  3. ILARIS [Suspect]
     Active Substance: CANAKINUMAB
     Dosage: 81 MG, QMO
     Route: 058
     Dates: start: 20230122

REACTIONS (7)
  - Ill-defined disorder [Unknown]
  - Weight increased [Unknown]
  - Pyrexia [Unknown]
  - Butterfly rash [Unknown]
  - Orbital oedema [Unknown]
  - Rash [Unknown]
  - Inappropriate schedule of product administration [Unknown]

NARRATIVE: CASE EVENT DATE: 20230701
